FAERS Safety Report 8573005-7 (Version None)
Quarter: 2012Q3

REPORT INFORMATION
  Report Type: 
  Country: None (occurrence: None)
  Receive Date: 20120806
  Receipt Date: 20120730
  Transmission Date: 20120928
  Serious: Yes (Other)
  Sender: FDA-Public Use
  Company Number: US-PFIZER INC-2012185704

PATIENT

DRUGS (1)
  1. DILANTIN [Suspect]
     Dosage: UNK

REACTIONS (9)
  - DERMATITIS EXFOLIATIVE [None]
  - EOSINOPHILIA [None]
  - PYREXIA [None]
  - HEPATITIS [None]
  - TUBULOINTERSTITIAL NEPHRITIS [None]
  - HYPERSENSITIVITY [None]
  - HAEMOLYTIC ANAEMIA [None]
  - LYMPHADENOPATHY [None]
  - HEPATOSPLENOMEGALY [None]
